FAERS Safety Report 7094330-5 (Version None)
Quarter: 2010Q4

REPORT INFORMATION
  Report Type: 
  Country: None (occurrence: None)
  Receive Date: 20101110
  Receipt Date: 20101101
  Transmission Date: 20110411
  Serious: Yes (Other)
  Sender: FDA-Public Use
  Company Number: GB-TEVA-254446ISR

PATIENT
  Age: 5 Year
  Sex: Female
  Weight: 119 kg

DRUGS (1)
  1. METHOTREXATE [Suspect]
     Indication: POLYARTHRITIS
     Route: 058
     Dates: start: 20060509

REACTIONS (1)
  - UVEITIS [None]
